FAERS Safety Report 6611590 (Version 2)
Quarter: 2017Q1

REPORT INFORMATION
  Report Type: Spontaneous
  Country: US (occurrence: US)
  Receive Date: 20080410
  Receipt Date: 20170112
  Transmission Date: 20170429
  Serious: Yes (Other)
  Sender: FDA-Public Use
  Company Number: US-PFIZER INC-2008029994

PATIENT
  Age: 62 Year
  Sex: Male
  Weight: 88.64 kg

DRUGS (4)
  1. LIPITOR [Concomitant]
     Active Substance: ATORVASTATIN CALCIUM
     Dosage: 10 MG, UNK
     Route: 048
  2. VIAGRA [Suspect]
     Active Substance: SILDENAFIL CITRATE
     Dosage: CUT THE 100 MG TABS IN QUARTERS
     Route: 048
  3. VIAGRA [Suspect]
     Active Substance: SILDENAFIL CITRATE
     Indication: ERECTILE DYSFUNCTION
     Dosage: 50 MG, AS NEEDED
     Route: 048
     Dates: start: 2003, end: 200801
  4. VIAGRA [Suspect]
     Active Substance: SILDENAFIL CITRATE
     Dosage: SPLITTING SILDENAFIL CITRATE 100 MG TABLET INTO HALF FROM 2003
     Route: 048
     Dates: start: 2003

REACTIONS (1)
  - Optic ischaemic neuropathy [Not Recovered/Not Resolved]

NARRATIVE: CASE EVENT DATE: 20080321
